FAERS Safety Report 14071370 (Version 1)
Quarter: 2017Q4

REPORT INFORMATION
  Report Type: Spontaneous
  Country: US (occurrence: US)
  Receive Date: 20171010
  Receipt Date: 20171010
  Transmission Date: 20180321
  Serious: No
  Sender: FDA-Public Use
  Company Number: US-JNJFOC-20170825901

PATIENT
  Sex: Female
  Weight: 90.72 kg

DRUGS (1)
  1. AXERT [Suspect]
     Active Substance: ALMOTRIPTAN MALATE
     Indication: MIGRAINE
     Dosage: 1 TABLET, REPEAT IN 2 HOURS IF NEEDED
     Route: 048
     Dates: start: 20060719

REACTIONS (1)
  - Drug dose omission [Unknown]

NARRATIVE: CASE EVENT DATE: 2017
